FAERS Safety Report 12633082 (Version 2)
Quarter: 2016Q3

REPORT INFORMATION
  Report Type: Spontaneous
  Country: US (occurrence: US)
  Receive Date: 20160808
  Receipt Date: 20160808
  Transmission Date: 20161109
  Serious: No
  Sender: FDA-Public Use
  Company Number: US-BEH-2016058389

PATIENT
  Sex: Female
  Weight: 107 kg

DRUGS (16)
  1. KETOTIFEN [Concomitant]
     Active Substance: KETOTIFEN
  2. SYSTANE (HYPROMELLOSE 2910 (4000 MPA.S)) [Concomitant]
     Active Substance: HYPROMELLOSE 2910 (4000 MPA.S)
  3. FLUCONAZOLE. [Concomitant]
     Active Substance: FLUCONAZOLE
  4. SINGULAIR [Concomitant]
     Active Substance: MONTELUKAST SODIUM
  5. FISH OIL [Concomitant]
     Active Substance: FISH OIL
  6. AZITHROMYCIN ANHYDROUS. [Concomitant]
     Active Substance: AZITHROMYCIN ANHYDROUS
  7. ASPIRIN. [Concomitant]
     Active Substance: ASPIRIN
  8. HIZENTRA [Suspect]
     Active Substance: HUMAN IMMUNOGLOBULIN G
     Route: 058
     Dates: start: 20140306
  9. FLAX SEED [Concomitant]
     Active Substance: FLAX SEED
  10. PRAVASTATIN. [Concomitant]
     Active Substance: PRAVASTATIN
  11. HIZENTRA [Suspect]
     Active Substance: HUMAN IMMUNOGLOBULIN G
     Route: 058
  12. HYDROCHLOROTHIAZIDE. [Concomitant]
     Active Substance: HYDROCHLOROTHIAZIDE
  13. PAZEO [Concomitant]
     Active Substance: OLOPATADINE HYDROCHLORIDE
  14. HIZENTRA [Suspect]
     Active Substance: HUMAN IMMUNOGLOBULIN G
     Indication: IMMUNODEFICIENCY COMMON VARIABLE
     Route: 058
  15. ISOSORBIDE. [Concomitant]
     Active Substance: ISOSORBIDE
  16. VITAMIN B [Concomitant]
     Active Substance: VITAMIN B

REACTIONS (1)
  - Nasopharyngitis [Unknown]
